FAERS Safety Report 17828332 (Version 1)
Quarter: 2020Q2

REPORT INFORMATION
  Report Type: Spontaneous
  Country: US (occurrence: US)
  Receive Date: 20200526
  Receipt Date: 20200526
  Transmission Date: 20200714
  Serious: Yes (Hospitalization)
  Sender: FDA-Public Use
  Company Number: None

PATIENT
  Age: 9 Year
  Sex: Male

DRUGS (3)
  1. SYMDECO [Concomitant]
  2. KITABIS PAK [Concomitant]
     Active Substance: TOBRAMYCIN
  3. PULMOZYME [Suspect]
     Active Substance: DORNASE ALFA

REACTIONS (1)
  - Hospitalisation [None]

NARRATIVE: CASE EVENT DATE: 20200522
